FAERS Safety Report 17867032 (Version 2)
Quarter: 2020Q4

REPORT INFORMATION
  Report Type: Spontaneous
  Country: US (occurrence: US)
  Receive Date: 20200605
  Receipt Date: 20201123
  Transmission Date: 20210113
  Serious: No
  Sender: FDA-Public Use
  Company Number: US-PFIZER INC-2017527507

PATIENT
  Age: 66 Year
  Sex: Female
  Weight: 56.69 kg

DRUGS (4)
  1. LYRICA [Suspect]
     Active Substance: PREGABALIN
     Indication: DRY EYE
     Dosage: 75 MG, 3X/DAY (1 CAPSULE (75 MG TOTAL) 3 (THREE) TIMES DAILY)
     Route: 048
  2. LYRICA [Suspect]
     Active Substance: PREGABALIN
     Indication: INSOMNIA
  3. LYRICA [Suspect]
     Active Substance: PREGABALIN
     Indication: NERVE INJURY
  4. LYRICA [Suspect]
     Active Substance: PREGABALIN
     Indication: SJOGREN^S SYNDROME
     Dosage: 75 MG, 2X/DAY (1 CAPSULE (75 MG TOTAL) BY MOUTH 2 (TWO) TIMES DAILY)
     Route: 048

REACTIONS (4)
  - Road traffic accident [Unknown]
  - Off label use [Unknown]
  - Product use in unapproved indication [Unknown]
  - Head injury [Unknown]
